FAERS Safety Report 24877158 (Version 2)
Quarter: 2025Q1

REPORT INFORMATION
  Report Type: Spontaneous
  Country: US (occurrence: US)
  Receive Date: 20250123
  Receipt Date: 20250128
  Transmission Date: 20250409
  Serious: No
  Sender: ABBVIE
  Company Number: US-ABBVIE-6096964

PATIENT
  Age: 66 Year
  Sex: Male

DRUGS (3)
  1. RINVOQ [Suspect]
     Active Substance: UPADACITINIB
     Indication: Colitis ulcerative
     Dosage: FORM STRENGTH : 30 MILLIGRAM
     Route: 048
     Dates: start: 202407
  2. MONTELUKAST [Concomitant]
     Active Substance: MONTELUKAST
     Indication: Hypersensitivity
  3. LEVOTHYROXINE [Concomitant]
     Active Substance: LEVOTHYROXINE
     Indication: Hypothyroidism

REACTIONS (7)
  - Blood cholesterol increased [Unknown]
  - Fatigue [Recovering/Resolving]
  - Colitis ulcerative [Recovered/Resolved]
  - Chills [Recovering/Resolving]
  - Bronchitis [Recovering/Resolving]
  - Pain [Recovering/Resolving]
  - Illness [Unknown]

NARRATIVE: CASE EVENT DATE: 20241201
